FAERS Safety Report 11172933 (Version 1)
Quarter: 2015Q2

REPORT INFORMATION
  Report Type: Spontaneous
  Country: US (occurrence: US)
  Receive Date: 20150608
  Receipt Date: 20150608
  Transmission Date: 20150821
  Serious: Yes (Other)
  Sender: FDA-Public Use
  Company Number: US-GLAXOSMITHKLINE-US2015GSK078753

PATIENT
  Age: 73 Year
  Sex: Female
  Weight: 53.52 kg

DRUGS (1)
  1. ARZERRA [Suspect]
     Active Substance: OFATUMUMAB
     Indication: CHRONIC LYMPHOCYTIC LEUKAEMIA
     Dosage: 2000 DF, WE
     Route: 042
     Dates: start: 20150304, end: 20150519

REACTIONS (1)
  - Basal cell carcinoma [Unknown]
